FAERS Safety Report 7021121-3 (Version None)
Quarter: 2010Q3

REPORT INFORMATION
  Report Type: 
  Country: None (occurrence: None)
  Receive Date: 20100929
  Receipt Date: 20100917
  Transmission Date: 20110219
  Serious: Yes (Other)
  Sender: FDA-Public Use
  Company Number: PHFR2010GB02968

PATIENT
  Age: 63 Year
  Sex: Female

DRUGS (19)
  1. CLIMESSE [Suspect]
     Dosage: 2 MG, QD
     Route: 065
  2. NITRAZEPAM [Concomitant]
     Dosage: 5 MG
     Route: 065
  3. NITRAZEPAM [Concomitant]
     Dosage: 7.5 MG
     Route: 065
  4. TOLTERODINE TARTRATE [Concomitant]
     Dosage: 1 MG
     Route: 065
  5. CO-DYDRAMOL [Concomitant]
     Dosage: PRN
     Route: 065
  6. CETRIZINE [Concomitant]
     Dosage: 10 MG, QD
     Route: 065
  7. DOMPERIDONE [Concomitant]
     Dosage: 10 MG, TID
     Route: 065
  8. GABAPENTIN [Concomitant]
     Dosage: 300 MG
     Route: 065
  9. OXYBUTYNIN [Concomitant]
     Dosage: 10 MG, QD
     Route: 065
  10. SIMVASTATIN [Concomitant]
     Dosage: 40 MG, QD, AT NIGHT
     Route: 065
  11. OMEPRAZOLE [Concomitant]
     Dosage: 20 MG, QD
     Route: 065
  12. OXYCODONE [Concomitant]
     Dosage: 10 MG, BID
     Route: 065
  13. NALOXONE [Concomitant]
     Dosage: 5 MG, BID
     Route: 065
  14. PROCHLORPERAZINE [Concomitant]
     Dosage: 5 MG, TID
     Route: 065
  15. FUROSEMIDE [Concomitant]
     Dosage: 40 MG, BID
     Route: 065
  16. CLARITHROMYCIN [Concomitant]
     Indication: PROPHYLAXIS
     Dosage: 500 MG, QD
     Route: 065
  17. ZOPICLONE [Concomitant]
     Dosage: 7.5 MG
     Route: 065
  18. TEMAZEPAM [Concomitant]
     Dosage: UNK
  19. TAGAMET [Concomitant]

REACTIONS (1)
  - VISION BLURRED [None]
